FAERS Safety Report 8489835-6 (Version None)
Quarter: 2012Q3

REPORT INFORMATION
  Report Type: 
  Country: None (occurrence: None)
  Receive Date: 20120705
  Receipt Date: 20120625
  Transmission Date: 20120928
  Serious: Yes (Death, Hospitalization)
  Sender: FDA-Public Use
  Company Number: JP-ACTELION-A-CH2012-64833

PATIENT
  Sex: Female
  Weight: 47.1 kg

DRUGS (8)
  1. FAMOTIDINE [Concomitant]
  2. TRACLEER [Suspect]
     Indication: PULMONARY ARTERIAL HYPERTENSION
     Dosage: 62.5 MG, BID
     Route: 048
     Dates: start: 20100119, end: 20110930
  3. OXYGEN [Concomitant]
  4. FUROSEMIDE [Concomitant]
  5. SILDENAFIL CITRATE [Concomitant]
  6. SPIRONOLACTONE [Concomitant]
  7. EPOPROSTENOL SODIUM [Concomitant]
  8. FERROUS CITRATE [Concomitant]

REACTIONS (17)
  - RENAL IMPAIRMENT [None]
  - INFECTION [None]
  - ASCITES [None]
  - RESPIRATORY DISTRESS [None]
  - OESOPHAGOGASTRODUODENOSCOPY [None]
  - GENERAL PHYSICAL HEALTH DETERIORATION [None]
  - BILIARY CIRRHOSIS PRIMARY [None]
  - PULSELESS ELECTRICAL ACTIVITY [None]
  - GASTRITIS EROSIVE [None]
  - DUODENITIS [None]
  - PARACENTESIS [None]
  - ANTIMITOCHONDRIAL ANTIBODY POSITIVE [None]
  - MALNUTRITION [None]
  - BLOOD PRESSURE DECREASED [None]
  - GASTROOESOPHAGEAL REFLUX DISEASE [None]
  - CREST SYNDROME [None]
  - VOMITING [None]
